FAERS Safety Report 9581332 (Version 2)
Quarter: 2013Q4

REPORT INFORMATION
  Report Type: Spontaneous
  Country: US (occurrence: US)
  Receive Date: 20131002
  Receipt Date: 20131107
  Transmission Date: 20140711
  Serious: Yes (Other)
  Sender: FDA-Public Use
  Company Number: US-GLAXOSMITHKLINE-A1043472A

PATIENT
  Age: 39 Year
  Sex: Female
  Weight: 55.6 kg

DRUGS (3)
  1. VOTRIENT [Suspect]
     Indication: EWING^S SARCOMA METASTATIC
     Dosage: 400MG TWICE PER DAY
     Route: 048
     Dates: start: 20130315, end: 20130724
  2. DIGOXIN [Concomitant]
  3. PANTOPRAZOLE [Concomitant]

REACTIONS (3)
  - Scleroderma [Recovering/Resolving]
  - Hand deformity [Recovering/Resolving]
  - Skin discolouration [Recovering/Resolving]
